FAERS Safety Report 8577565 (Version 2)
Quarter: 2012Q4

REPORT INFORMATION
  Report Type: 
  Country: US (occurrence: US)
  Receive Date: 20120524
  Receipt Date: 20120910
  Transmission Date: 20130627
  Serious: Yes (Other)
  Sender: FDA-Public Use
  Company Number: US-BAYER-2012-050670

PATIENT
  Age: 28 Year
  Sex: Female
  Weight: 79.37 kg

DRUGS (7)
  1. YAZ [Suspect]
     Indication: CONTRACEPTION
     Dosage: UNK
     Dates: start: 200805, end: 200904
  2. YAZ [Suspect]
     Indication: POLYCYSTIC OVARIES
  3. VALTREX [Concomitant]
     Dosage: UNK
     Dates: start: 2007, end: 2008
  4. CHANTIX [Concomitant]
     Indication: EX-TOBACCO USER
     Dosage: UNK
     Dates: start: 2007, end: 2008
  5. AVELOX [Concomitant]
     Indication: UPPER RESPIRATORY TRACT INFECTION
  6. MUCINEX [Concomitant]
     Indication: UPPER RESPIRATORY TRACT INFECTION
  7. AMBIEN [Concomitant]
     Dosage: UNK UNK, PRN

REACTIONS (8)
  - Cholelithiasis [None]
  - Cholecystitis chronic [None]
  - Abdominal pain [None]
  - Injury [None]
  - Pain [None]
  - Emotional distress [None]
  - General physical health deterioration [None]
  - Anxiety [None]
